FAERS Safety Report 8290946-9 (Version None)
Quarter: 2012Q2

REPORT INFORMATION
  Report Type: 
  Country: None (occurrence: None)
  Receive Date: 20120417
  Receipt Date: 20111230
  Transmission Date: 20120825
  Serious: No
  Sender: FDA-Public Use
  Company Number: US-ASTRAZENECA-2012SE00113

PATIENT
  Age: 65 Year
  Sex: Female
  Weight: 99.8 kg

DRUGS (7)
  1. LISINOPRIL [Concomitant]
     Indication: BLOOD PRESSURE ABNORMAL
  2. ATIVAN [Concomitant]
  3. NEXIUM [Suspect]
     Route: 048
  4. MELOXIPAM [Concomitant]
  5. NEXIUM [Suspect]
     Route: 048
  6. METFORMIN HCL [Suspect]
     Indication: BLOOD GLUCOSE ABNORMAL
     Route: 065
  7. FEXER [Concomitant]

REACTIONS (5)
  - BLOOD GLUCOSE DECREASED [None]
  - INCORRECT DOSE ADMINISTERED [None]
  - ASTHENIA [None]
  - DRUG INEFFECTIVE [None]
  - FATIGUE [None]
